FAERS Safety Report 19012622 (Version 1)
Quarter: 2021Q1

REPORT INFORMATION
  Report Type: Spontaneous
  Country: GB (occurrence: GB)
  Receive Date: 20210316
  Receipt Date: 20210316
  Transmission Date: 20210420
  Serious: Yes (Other)
  Sender: FDA-Public Use
  Company Number: GB-PFIZER INC-2021239072

PATIENT
  Age: 54 Year
  Sex: Female
  Weight: 99.8 kg

DRUGS (16)
  1. CERNEVIT [Concomitant]
     Active Substance: VITAMINS
     Indication: PARENTERAL NUTRITION
     Dates: start: 20210220, end: 20210220
  2. METOCLOPRAMIDE. [Concomitant]
     Active Substance: METOCLOPRAMIDE
     Dates: start: 20210224, end: 20210224
  3. AMIODARONE HYDROCHLORIDE. [Concomitant]
     Active Substance: AMIODARONE HYDROCHLORIDE
     Indication: SUPRAVENTRICULAR TACHYCARDIA
     Dates: start: 20210221, end: 20210221
  4. HYDROCORTISONE SODIUM SUCCINATE [Concomitant]
     Active Substance: HYDROCORTISONE SODIUM SUCCINATE
     Indication: BLOOD PRESSURE DECREASED
     Dates: start: 20210219, end: 20210220
  5. MEROPENEM. [Suspect]
     Active Substance: MEROPENEM
     Indication: ABDOMINAL SEPSIS
     Dosage: 4 G (CONTINUOUS INTRAVENOUS INFUSION ON CRITICAL CARE PER RENAL FUNCTION)
     Route: 042
     Dates: start: 20210223, end: 20210226
  6. AMOXICILLIN. [Concomitant]
     Active Substance: AMOXICILLIN
     Indication: ABDOMINAL SEPSIS
     Dates: start: 20210219, end: 20210220
  7. GENTAMICIN. [Concomitant]
     Active Substance: GENTAMICIN
     Indication: ABDOMINAL SEPSIS
     Dates: start: 20210219, end: 20210220
  8. OMEPRAZOLE SODIUM [Concomitant]
     Active Substance: OMEPRAZOLE SODIUM
     Dates: start: 20210219
  9. ENOXAPARIN SODIUM. [Concomitant]
     Active Substance: ENOXAPARIN SODIUM
     Indication: THROMBOSIS PROPHYLAXIS
     Dates: start: 20210219
  10. THIAMINE. [Concomitant]
     Active Substance: THIAMINE
     Indication: REFEEDING SYNDROME
     Dates: start: 20210223
  11. PARACETAMOL [Concomitant]
     Active Substance: ACETAMINOPHEN
     Indication: ANALGESIC THERAPY
     Dates: start: 20210219
  12. ADDITRACE [Concomitant]
     Active Substance: MINERALS
     Indication: PARENTERAL NUTRITION
     Dates: start: 20210220, end: 20210220
  13. MELATONIN [Concomitant]
     Active Substance: MELATONIN
     Indication: INSOMNIA
     Dates: start: 20210224
  14. PABRINEX [ASCORBIC ACID;NICOTINAMIDE;PYRIDOXINE HYDROCHLORIDE;RIBOFLAV [Concomitant]
     Indication: REFEEDING SYNDROME
     Dates: start: 20210219, end: 20210223
  15. PIPERACILLIN AND TAZOBACTAM [Concomitant]
     Active Substance: PIPERACILLIN SODIUM\TAZOBACTAM SODIUM
     Indication: ABDOMINAL SEPSIS
     Dates: start: 20210221, end: 20210222
  16. METRONIDAZOLE. [Concomitant]
     Active Substance: METRONIDAZOLE
     Indication: ABDOMINAL SEPSIS
     Dates: start: 20210219, end: 20210220

REACTIONS (2)
  - Rash vesicular [Not Recovered/Not Resolved]
  - Rash erythematous [Not Recovered/Not Resolved]

NARRATIVE: CASE EVENT DATE: 20210226
